FAERS Safety Report 7920625-6 (Version None)
Quarter: 2011Q4

REPORT INFORMATION
  Report Type: 
  Country: None (occurrence: None)
  Receive Date: 20111117
  Receipt Date: 20111115
  Transmission Date: 20120403
  Serious: Yes (Life-Threatening, Hospitalization)
  Sender: FDA-Public Use
  Company Number: PHHO2011TR019201

PATIENT
  Sex: Female
  Weight: 44.5 kg

DRUGS (2)
  1. EXJADE [Suspect]
     Indication: IRON OVERLOAD
     Dosage: 20 MG/KG, UNK
     Dates: start: 20111104, end: 20111113
  2. DESFERAL [Suspect]
     Indication: IRON OVERLOAD
     Dosage: 40 MG/KG, UNK
     Dates: start: 20111104, end: 20111113

REACTIONS (4)
  - ASTHENIA [None]
  - RASH [None]
  - CALCIUM DEFICIENCY [None]
  - INFECTION [None]
